FAERS Safety Report 5269142-5 (Version None)
Quarter: 2007Q1

REPORT INFORMATION
  Report Type: 
  Country: None (occurrence: None)
  Receive Date: 20070319
  Receipt Date: 20070312
  Transmission Date: 20070707
  Serious: Yes (Hospitalization)
  Sender: FDA-Public Use
  Company Number: DE-BOEHRINGER INGELHEIM PHARMACEUTICALS, INC.-2007-DE-01558DE

PATIENT
  Age: 77 Year
  Sex: Male

DRUGS (2)
  1. AGGRENOX [Suspect]
     Indication: TRANSIENT ISCHAEMIC ATTACK
     Route: 048
     Dates: start: 20040801, end: 20060101
  2. AGGRENOX [Suspect]
     Indication: CEREBRAL INFARCTION

REACTIONS (1)
  - ANEURYSM RUPTURED [None]
